FAERS Safety Report 13608082 (Version 2)
Quarter: 2017Q2

REPORT INFORMATION
  Report Type: Spontaneous
  Country: US (occurrence: US)
  Receive Date: 20170602
  Receipt Date: 20170602
  Transmission Date: 20170830
  Serious: No
  Sender: FDA-Public Use
  Company Number: US-ELI_LILLY_AND_COMPANY-US201705012244

PATIENT
  Sex: Male

DRUGS (1)
  1. BASAGLAR [Suspect]
     Active Substance: INSULIN GLARGINE
     Indication: TYPE 2 DIABETES MELLITUS
     Dosage: 62 U, UNKNOWN
     Route: 065
     Dates: start: 201704

REACTIONS (3)
  - Weight increased [Unknown]
  - Blood glucose increased [Not Recovered/Not Resolved]
  - Limb discomfort [Not Recovered/Not Resolved]
